FAERS Safety Report 15070105 (Version 1)
Quarter: 2018Q2

REPORT INFORMATION
  Report Type: Spontaneous
  Country: US (occurrence: US)
  Receive Date: 20180626
  Receipt Date: 20180626
  Transmission Date: 20180711
  Serious: Yes (Other)
  Sender: FDA-Public Use
  Company Number: US-JNJFOC-20180623953

PATIENT
  Age: 70 Year
  Sex: Female
  Weight: 105.24 kg

DRUGS (1)
  1. INVOKANA [Suspect]
     Active Substance: CANAGLIFLOZIN
     Indication: DIABETES MELLITUS
     Dosage: BEFORE FIRST MEAL
     Route: 048

REACTIONS (1)
  - May-Thurner syndrome [Not Recovered/Not Resolved]

NARRATIVE: CASE EVENT DATE: 201802
